FAERS Safety Report 10982842 (Version 1)
Quarter: 2015Q1

REPORT INFORMATION
  Report Type: Spontaneous
  Country: US (occurrence: None)
  Receive Date: 20150302
  Receipt Date: 20150302
  Transmission Date: 20150721
  Serious: Yes (Other)
  Sender: FDA-Public Use
  Company Number: M2014-014B

PATIENT
  Age: 74 Year
  Sex: Male

DRUGS (13)
  1. TAMSUFOSIN [Concomitant]
  2. FLONASE [Concomitant]
     Active Substance: FLUTICASONE PROPIONATE
  3. SINGULAIR [Concomitant]
     Active Substance: MONTELUKAST SODIUM
  4. COCKROACH 0.5 ML [Suspect]
     Active Substance: ALLERGENIC EXTRACT- COCKROACH PERIPLANETA AMERICANA
     Indication: ALLERGY TEST
     Dosage: 0.5-0.15CC/INJ/2WEEKS
     Dates: start: 20140923, end: 20141010
  5. SYMBACORT [Concomitant]
  6. EPICOCCUM 0.5 ML [Suspect]
     Active Substance: ALLERGENIC EXTRACT- EPICOCCUM NIGRUM
     Indication: ALLERGY TEST
     Dosage: 0.5-0.15CC/INJ/2WEEKS
     Dates: start: 20140923, end: 20141010
  7. FUSARIUM 0.5 ML [Suspect]
     Active Substance: FUSARIUM OXYSPORUM VASINFECTUM
     Indication: ALLERGY TEST
     Dosage: 0.5-0.15CC/INJ/2WEEKS
     Dates: start: 20140923, end: 20141010
  8. PHOMA 0.5 ML [Suspect]
     Active Substance: PHOMA EXIGUA VAR. EXIGUA
     Indication: ALLERGY TEST
     Dosage: 0.5-0.15CC/INJ/2WEEKS
     Dates: start: 20140923, end: 20141010
  9. NEXIUM [Concomitant]
     Active Substance: ESOMEPRAZOLE MAGNESIUM
  10. CANDIDA 0.5 ML [Suspect]
     Active Substance: ALLERGENIC EXTRACT- CANDIDA
     Indication: ALLERGY TEST
     Dosage: 0.5-0.15CC/INJ/2WEEKS
     Dates: start: 20140923, end: 20141010
  11. ABS DILUENT (PHENOL) [Suspect]
     Active Substance: PHENOL
     Indication: ALLERGY TEST
     Dosage: 0.5-0.15CC/INJECTION/2 WEEKS
     Dates: start: 20140923, end: 20141010
  12. ASPERGILLIUS 0.5 ML [Suspect]
     Active Substance: ASPERGILLUS FUMIGATUS
     Indication: ALLERGY TEST
     Dosage: 0.5-0.15CC/INJ/2WEEKS
     Dates: start: 20140923, end: 20141010
  13. OVACUE [Concomitant]

REACTIONS (3)
  - Injection site pain [None]
  - Injection site mass [None]
  - Injection site swelling [None]

NARRATIVE: CASE EVENT DATE: 20141010
